FAERS Safety Report 5809360-8 (Version None)
Quarter: 2008Q3

REPORT INFORMATION
  Report Type: 
  Country: None (occurrence: None)
  Receive Date: 20080714
  Receipt Date: 20080709
  Transmission Date: 20090109
  Serious: Yes (Death, Other)
  Sender: FDA-Public Use
  Company Number: PHHY2008JP09124

PATIENT
  Age: 59 Year
  Sex: Male

DRUGS (10)
  1. ZOLEDRONIC ACID [Suspect]
     Indication: LUNG NEOPLASM MALIGNANT
     Dosage: UNK
     Dates: start: 20070516, end: 20070516
  2. OXYCONTIN [Concomitant]
     Dosage: 10 MG
     Route: 048
     Dates: start: 20070516, end: 20070530
  3. OXYCONTIN [Concomitant]
     Dosage: UNK
     Route: 048
     Dates: start: 20070516, end: 20070530
  4. MORPHINE HCL ELIXIR [Concomitant]
     Dosage: 5 MG
     Route: 048
     Dates: start: 20070516, end: 20070520
  5. OXINORM [Concomitant]
     Dosage: 2.5 MG
     Route: 048
     Dates: start: 20070521, end: 20070527
  6. SPIRIVA [Concomitant]
     Dosage: 18 UG
     Dates: start: 20070601, end: 20070921
  7. BETAMETHASONE [Concomitant]
     Dosage: 1 MG
     Route: 048
     Dates: start: 20070601, end: 20070921
  8. CARBOPLATIN [Concomitant]
  9. IRINOTECAN HCL [Concomitant]
  10. NOVAMIN [Concomitant]
     Dosage: 15 MG
     Route: 048
     Dates: start: 20070516, end: 20070630

REACTIONS (2)
  - DEATH [None]
  - METASTASES TO CENTRAL NERVOUS SYSTEM [None]
